FAERS Safety Report 15661109 (Version 2)
Quarter: 2018Q4

REPORT INFORMATION
  Report Type: Spontaneous
  Country: JP (occurrence: JP)
  Receive Date: 20181127
  Receipt Date: 20181210
  Transmission Date: 20190205
  Serious: Yes (Death, Other)
  Sender: FDA-Public Use
  Company Number: JP-PFIZER INC-2018483035

PATIENT
  Age: 60 Year
  Sex: Male
  Weight: 62 kg

DRUGS (3)
  1. ALOXI [Concomitant]
     Active Substance: PALONOSETRON HYDROCHLORIDE
     Dosage: UNK
     Route: 041
  2. METHOTREXATE. [Suspect]
     Active Substance: METHOTREXATE
     Dosage: 800 MG, DAILY (IN 3 HOURS)
     Route: 041
     Dates: start: 20181030, end: 20181030
  3. METHOTREXATE. [Suspect]
     Active Substance: METHOTREXATE
     Indication: LYMPHOMA
     Dosage: 5000 MG, DAILY (IN 3 HOURS)
     Route: 041
     Dates: start: 20181030, end: 20181030

REACTIONS (7)
  - Skin disorder [Fatal]
  - Drug level increased [Not Recovered/Not Resolved]
  - Liver disorder [Unknown]
  - Platelet count decreased [Fatal]
  - Mucous membrane disorder [Fatal]
  - Nephropathy toxic [Fatal]
  - Sepsis [Fatal]

NARRATIVE: CASE EVENT DATE: 20181031
